FAERS Safety Report 7213679-6 (Version None)
Quarter: 2011Q1

REPORT INFORMATION
  Report Type: 
  Country: None (occurrence: None)
  Receive Date: 20110106
  Receipt Date: 20101223
  Transmission Date: 20110831
  Serious: Yes (Death, Hospitalization, Other)
  Sender: FDA-Public Use
  Company Number: US-CELGENEUS-163-21880-10091108

PATIENT
  Sex: Male

DRUGS (13)
  1. CELEBREX [Concomitant]
     Route: 065
  2. FLOMAX [Concomitant]
     Indication: URINARY RETENTION
     Route: 065
  3. HALDOL [Concomitant]
     Indication: DEPRESSION
     Route: 065
  4. AMLODIPINE [Concomitant]
     Route: 065
  5. REVLIMID [Suspect]
     Indication: MULTIPLE MYELOMA
     Route: 048
     Dates: start: 20100827, end: 20100903
  6. COZAAR [Concomitant]
     Route: 065
  7. NORMAL SALINE [Concomitant]
     Route: 065
     Dates: start: 20100901
  8. PREDNISONE [Suspect]
     Indication: MULTIPLE MYELOMA
     Route: 065
  9. SIMVASTATIN [Concomitant]
     Route: 065
  10. LOPRESSOR [Concomitant]
     Indication: ATRIAL FIBRILLATION
     Route: 051
  11. CELEXA [Concomitant]
     Indication: ANXIETY
     Route: 065
  12. VELCADE [Suspect]
     Indication: MULTIPLE MYELOMA
     Route: 065
  13. ALLOPURINOL [Concomitant]
     Route: 065

REACTIONS (6)
  - CARDIAC ARREST [None]
  - STAPHYLOCOCCAL BACTERAEMIA [None]
  - CELLULITIS STAPHYLOCOCCAL [None]
  - ATRIAL FIBRILLATION [None]
  - THROMBOPHLEBITIS SUPERFICIAL [None]
  - RENAL FAILURE ACUTE [None]
